FAERS Safety Report 4687848-3 (Version None)
Quarter: 2005Q2

REPORT INFORMATION
  Report Type: 
  Country: None (occurrence: None)
  Receive Date: 20050610
  Receipt Date: 20050610
  Transmission Date: 20051028
  Serious: Yes (Other)
  Sender: FDA-Public Use
  Company Number: None

PATIENT
  Sex: Female
  Weight: 3.3566 kg

DRUGS (2)
  1. PROZAC [Suspect]
     Indication: BIPOLAR DISORDER
     Dosage: ONE    DAILY    ORAL
     Route: 048
     Dates: start: 20040909, end: 20050525
  2. ABILIFY [Suspect]
     Indication: BIPOLAR DISORDER
     Dosage: ONE    DAILY   ORAL
     Route: 048
     Dates: start: 20041010, end: 20050525

REACTIONS (8)
  - COMPLICATION OF PREGNANCY [None]
  - DRUG EXPOSURE DURING PREGNANCY [None]
  - DRUG WITHDRAWAL SYNDROME NEONATAL [None]
  - DYSKINESIA NEONATAL [None]
  - EYE MOVEMENT DISORDER [None]
  - IRRITABILITY [None]
  - MOVEMENT DISORDER [None]
  - NEONATAL DISORDER [None]
